FAERS Safety Report 7461763-4 (Version None)
Quarter: 2011Q2

REPORT INFORMATION
  Report Type: 
  Country: None (occurrence: None)
  Receive Date: 20110506
  Receipt Date: 20110325
  Transmission Date: 20111010
  Serious: No
  Sender: FDA-Public Use
  Company Number: US-BAYER-2011-027293

PATIENT
  Sex: Female

DRUGS (1)
  1. NATAZIA [Suspect]
     Dosage: UNK
     Dates: start: 20110101, end: 20110301

REACTIONS (3)
  - RASH GENERALISED [None]
  - FUNGAL INFECTION [None]
  - GENITAL RASH [None]
